FAERS Safety Report 5216660-1 (Version None)
Quarter: 2007Q1

REPORT INFORMATION
  Report Type: 
  Country: None (occurrence: None)
  Receive Date: 20061130
  Receipt Date: 20060531
  Transmission Date: 20070707
  Serious: Yes (Hospitalization)
  Sender: FDA-Public Use
  Company Number: US200604004439

PATIENT
  Age: 42 Year
  Sex: Female
  Weight: 101.1 kg

DRUGS (1)
  1. ZYPREXA [Suspect]
     Dosage: 10 MG
     Dates: start: 19970601

REACTIONS (7)
  - BILIARY TRACT DISORDER [None]
  - BLOOD CHOLESTEROL ABNORMAL [None]
  - DIABETES MELLITUS [None]
  - HYPERGLYCAEMIA [None]
  - HYPERTENSION [None]
  - OBESITY [None]
  - POLYURIA [None]
